FAERS Safety Report 13867428 (Version 3)
Quarter: 2017Q4

REPORT INFORMATION
  Report Type: Report from Study
  Country: US (occurrence: US)
  Receive Date: 20170814
  Receipt Date: 20171023
  Transmission Date: 20180320
  Serious: Yes (Hospitalization, Other)
  Sender: FDA-Public Use
  Company Number: US-ACADIA PHARMACEUTICALS INC.-ACA-2017-004773

PATIENT
  Sex: Male
  Weight: 60.77 kg

DRUGS (9)
  1. NUPLAZID [Suspect]
     Active Substance: PIMAVANSERIN TARTRATE
     Indication: PARKINSON^S DISEASE
     Dosage: 34 MG, QD
     Route: 048
     Dates: start: 20170622
  2. OLANZAPINE. [Concomitant]
     Active Substance: OLANZAPINE
     Indication: PRODUCT USED FOR UNKNOWN INDICATION
  3. ATROPINE. [Concomitant]
     Active Substance: ATROPINE
     Indication: PRODUCT USED FOR UNKNOWN INDICATION
  4. CLONAZEPAM. [Concomitant]
     Active Substance: CLONAZEPAM
     Indication: PRODUCT USED FOR UNKNOWN INDICATION
  5. NUPLAZID [Suspect]
     Active Substance: PIMAVANSERIN TARTRATE
     Indication: DELUSION
  6. SERTRALINE [Concomitant]
     Active Substance: SERTRALINE HYDROCHLORIDE
     Indication: PRODUCT USED FOR UNKNOWN INDICATION
  7. NUPLAZID [Suspect]
     Active Substance: PIMAVANSERIN TARTRATE
     Indication: HALLUCINATION
     Dosage: 34 MG, BID
     Route: 048
     Dates: start: 20170719
  8. NUPLAZID [Suspect]
     Active Substance: PIMAVANSERIN TARTRATE
     Indication: PARKINSON^S DISEASE PSYCHOSIS
  9. EXELON [Concomitant]
     Active Substance: RIVASTIGMINE TARTRATE
     Indication: PRODUCT USED FOR UNKNOWN INDICATION

REACTIONS (20)
  - Dysphagia [Unknown]
  - Delusion [Not Recovered/Not Resolved]
  - Fatigue [Unknown]
  - Eating disorder [Unknown]
  - Hallucination [Unknown]
  - Weight decreased [Unknown]
  - Secretion discharge [Unknown]
  - Loss of consciousness [Unknown]
  - Convulsions local [Unknown]
  - Asthenia [Unknown]
  - Rash vesicular [Not Recovered/Not Resolved]
  - Psoriasis [Unknown]
  - General physical health deterioration [Unknown]
  - Rash macular [Not Recovered/Not Resolved]
  - Anxiety [Unknown]
  - Constipation [Unknown]
  - Faecaloma [Unknown]
  - Gait inability [Unknown]
  - Drug ineffective [Unknown]
  - Overdose [Unknown]

NARRATIVE: CASE EVENT DATE: 2017
